FAERS Safety Report 7261051-5 (Version None)
Quarter: 2011Q1

REPORT INFORMATION
  Report Type: 
  Country: None (occurrence: None)
  Receive Date: 20110130
  Receipt Date: 20101222
  Transmission Date: 20110831
  Serious: No
  Sender: FDA-Public Use
  Company Number: US-ABBOTT-10P-163-0694032-00

PATIENT
  Sex: Female
  Weight: 118.04 kg

DRUGS (8)
  1. ZOLOFT [Concomitant]
     Indication: DEPRESSION
  2. HUMIRA [Suspect]
     Indication: CROHN'S DISEASE
     Dates: start: 20080901
  3. AMITRIPTYLINE HCL [Concomitant]
     Indication: INSOMNIA
  4. XANAX [Concomitant]
     Indication: ANXIETY
  5. FLU VACCINATION [Concomitant]
     Indication: ANTIVIRAL PROPHYLAXIS
     Dates: start: 20101001, end: 20101001
  6. WHOOPING COUGH VACCINATION [Concomitant]
     Indication: PERTUSSIS
     Dates: start: 20101001, end: 20101001
  7. NIASPAN [Suspect]
     Indication: HIGH DENSITY LIPOPROTEIN DECREASED
     Dates: start: 20101109
  8. LIPITOR [Concomitant]
     Indication: BLOOD CHOLESTEROL INCREASED

REACTIONS (7)
  - COUGH [None]
  - NASAL CONGESTION [None]
  - INCREASED UPPER AIRWAY SECRETION [None]
  - INCORRECT DOSE ADMINISTERED [None]
  - BLISTER [None]
  - HOT FLUSH [None]
  - PRURITUS [None]
